FAERS Safety Report 12100572 (Version 2)
Quarter: 2020Q1

REPORT INFORMATION
  Report Type: Spontaneous
  Country: US (occurrence: US)
  Receive Date: 20160222
  Receipt Date: 20200102
  Transmission Date: 20200409
  Serious: No
  Sender: FDA-Public Use
  Company Number: US-BIOGEN-2016BI00191295

PATIENT

DRUGS (1)
  1. TECFIDERA [Suspect]
     Active Substance: DIMETHYL FUMARATE
     Indication: MULTIPLE SCLEROSIS
     Route: 065

REACTIONS (7)
  - Weight decreased [Unknown]
  - Muscle spasticity [Unknown]
  - Myalgia [Unknown]
  - Dry mouth [Unknown]
  - Rhinorrhoea [Unknown]
  - Lymphocyte count decreased [Unknown]
  - Pneumonia [Unknown]
